FAERS Safety Report 10193692 (Version 1)
Quarter: 2014Q2

REPORT INFORMATION
  Report Type: Spontaneous
  Country: US (occurrence: US)
  Receive Date: 20140524
  Receipt Date: 20140524
  Transmission Date: 20141212
  Serious: No
  Sender: FDA-Public Use
  Company Number: US-SA-2014SA000134

PATIENT
  Age: 72 Year
  Sex: Female
  Weight: 98.88 kg

DRUGS (3)
  1. LANTUS SOLOSTAR [Suspect]
     Indication: TYPE 2 DIABETES MELLITUS
     Route: 058
     Dates: start: 201307
  2. LANTUS SOLOSTAR [Suspect]
     Indication: TYPE 2 DIABETES MELLITUS
     Dosage: DOSE:12 UNIT(S)
     Route: 058
  3. SOLOSTAR [Concomitant]
     Indication: TYPE 2 DIABETES MELLITUS
     Dates: start: 201307

REACTIONS (3)
  - Visual acuity reduced [Unknown]
  - Blood glucose increased [Unknown]
  - Blood glucose decreased [Unknown]
